FAERS Safety Report 9786903 (Version 1)
Quarter: 2013Q4

REPORT INFORMATION
  Report Type: Report from Study
  Country: US (occurrence: US)
  Receive Date: 20131227
  Receipt Date: 20131227
  Transmission Date: 20140711
  Serious: Yes (Other)
  Sender: FDA-Public Use
  Company Number: US-ABBVIE-13P-163-1180859-00

PATIENT
  Sex: Female

DRUGS (2)
  1. LUPRON DEPOT [Suspect]
     Indication: ENDOMETRIOSIS
     Dates: start: 2002
  2. LUPRON DEPOT [Suspect]
     Dates: start: 2009

REACTIONS (2)
  - Vaginal haemorrhage [Recovered/Resolved]
  - Drug ineffective [Recovered/Resolved]
